FAERS Safety Report 21094790 (Version 2)
Quarter: 2022Q3

REPORT INFORMATION
  Report Type: Spontaneous
  Country: JP (occurrence: JP)
  Receive Date: 20220718
  Receipt Date: 20220729
  Transmission Date: 20221027
  Serious: Yes (Hospitalization, Other)
  Sender: FDA-Public Use
  Company Number: JP-GLAXOSMITHKLINE-JP2022JPN101860

PATIENT

DRUGS (13)
  1. ZOVIRAX [Suspect]
     Active Substance: ACYCLOVIR
     Indication: Prophylaxis
     Dosage: 750 MG/DAY
     Route: 041
  2. LAMICTAL [Suspect]
     Active Substance: LAMOTRIGINE
     Indication: Anger
     Dosage: 25 MG/DAY
     Route: 048
  3. MAGNESIUM OXIDE [Concomitant]
     Active Substance: MAGNESIUM OXIDE
     Indication: Megacolon
     Dosage: UNK
  4. CLOSTRIDIUM BUTYRICUM SPORES STRAIN M-55 [Concomitant]
     Active Substance: CLOSTRIDIUM BUTYRICUM SPORES STRAIN M-55
     Indication: Megacolon
     Dosage: UNK
  5. HERBALS [Concomitant]
     Active Substance: HERBALS
     Indication: Megacolon
     Dosage: UNK
  6. MOSAPRIDE CITRATE [Concomitant]
     Active Substance: MOSAPRIDE CITRATE
     Indication: Megacolon
     Dosage: UNK
  7. DOMPERIDONE [Concomitant]
     Active Substance: DOMPERIDONE
     Indication: Megacolon
     Dosage: UNK
  8. ARGININE HYDROCHLORIDE [Concomitant]
     Active Substance: ARGININE HYDROCHLORIDE
     Indication: MELAS syndrome
     Dosage: 30 G, EVERY OTHER DAY
  9. TAURINE [Concomitant]
     Active Substance: TAURINE
     Indication: MELAS syndrome
     Dosage: 9 G/DAY
  10. METHYLPREDNISOLONE [Concomitant]
     Active Substance: METHYLPREDNISOLONE
     Indication: MELAS syndrome
     Dosage: 1 G/DAY
  11. LEVETIRACETAM [Concomitant]
     Active Substance: LEVETIRACETAM
     Indication: Prophylaxis
     Dosage: 1000 MG/DAY
     Route: 048
  12. LEVETIRACETAM [Concomitant]
     Active Substance: LEVETIRACETAM
     Dosage: 500 MG/DAY
     Route: 048
  13. DISTIGMINE BROMIDE [Concomitant]
     Active Substance: DISTIGMINE BROMIDE
     Indication: Intestinal obstruction
     Dosage: 5 MG/DAY
     Route: 048

REACTIONS (7)
  - Intellectual disability [Unknown]
  - Abnormal behaviour [Unknown]
  - Psychiatric symptom [Unknown]
  - Anger [Unknown]
  - Feeding disorder [Unknown]
  - Weight decreased [Unknown]
  - Product use in unapproved indication [Unknown]
